FAERS Safety Report 16381270 (Version 1)
Quarter: 2019Q2

REPORT INFORMATION
  Report Type: Spontaneous
  Country: DE (occurrence: DE)
  Receive Date: 20190603
  Receipt Date: 20190603
  Transmission Date: 20190711
  Serious: Yes (Other)
  Sender: FDA-Public Use
  Company Number: DE-GILEAD-2019-0411125

PATIENT
  Sex: Male

DRUGS (5)
  1. BIOTIN, LACTOBACILLUS ACIDOPHILUS [Concomitant]
     Indication: NUTRITIONAL SUPPLEMENTATION
     Dosage: SYMBIOLACT, 1X/DAY, 0-1-0
     Route: 048
  2. EZETIMIBE + SIMVASTATIN [Concomitant]
     Active Substance: EZETIMIBE\SIMVASTATIN
     Indication: LIPIDS INCREASED
     Dosage: INEGY, 10 MG/40 MG, 1X/DAY, 0-0-1
  3. RANOLAZINE. [Suspect]
     Active Substance: RANOLAZINE
     Indication: MYOCARDIAL INFARCTION
     Dosage: 375 MG, BID, 1-0-1
     Route: 048
     Dates: start: 2015, end: 201612
  4. RANOLAZINE. [Suspect]
     Active Substance: RANOLAZINE
     Indication: ANGINA PECTORIS
     Dosage: 500 MG, BID, 1-0-1
     Route: 048
     Dates: start: 201612
  5. ACETYLSALICYLIC ACID [Concomitant]
     Active Substance: ASPIRIN
     Dosage: 100 MG, 1X/DAY, 1-0-0
     Route: 048

REACTIONS (3)
  - Nausea [Not Recovered/Not Resolved]
  - Dry skin [Not Recovered/Not Resolved]
  - Basal cell carcinoma [Not Recovered/Not Resolved]

NARRATIVE: CASE EVENT DATE: 201804
